FAERS Safety Report 14114308 (Version 1)
Quarter: 2017Q4

REPORT INFORMATION
  Report Type: Spontaneous
  Country: US (occurrence: US)
  Receive Date: 20171023
  Receipt Date: 20171023
  Transmission Date: 20180321
  Serious: No
  Sender: FDA-Public Use
  Company Number: US-ELI_LILLY_AND_COMPANY-US201710000257

PATIENT
  Sex: Female

DRUGS (1)
  1. BASAGLAR [Suspect]
     Active Substance: INSULIN GLARGINE
     Indication: PRODUCT USED FOR UNKNOWN INDICATION
     Dosage: 100 IU, BID
     Route: 065

REACTIONS (5)
  - Accidental exposure to product [Unknown]
  - Product storage error [Unknown]
  - Underdose [Unknown]
  - Injection site pain [Unknown]
  - Drug dose omission [Unknown]
